FAERS Safety Report 17654031 (Version 2)
Quarter: 2020Q4

REPORT INFORMATION
  Report Type: Spontaneous
  Country: CA (occurrence: CA)
  Receive Date: 20200410
  Receipt Date: 20201020
  Transmission Date: 20210113
  Serious: Yes (Disabling, Other)
  Sender: FDA-Public Use
  Company Number: CA-SAMSUNG BIOEPIS-SB-2020-11747

PATIENT
  Age: 69 Year
  Sex: Male

DRUGS (5)
  1. ENTOCORT [Concomitant]
     Active Substance: BUDESONIDE
     Dosage: SUSTAINED RELEASE CAPSULE
     Route: 048
  2. ENTOCORT [Concomitant]
     Active Substance: BUDESONIDE
     Indication: CROHN^S DISEASE
     Dosage: SUSTAINED RELEASE CAPSULE
     Route: 065
  3. ENTOCORT [Concomitant]
     Active Substance: BUDESONIDE
     Indication: PRODUCT USED FOR UNKNOWN INDICATION
     Route: 065
  4. INFLIXIMAB [Suspect]
     Active Substance: INFLIXIMAB
     Indication: CROHN^S DISEASE
     Route: 042
  5. INFLIXIMAB [Suspect]
     Active Substance: INFLIXIMAB
     Route: 042

REACTIONS (12)
  - Arthralgia [Not Recovered/Not Resolved]
  - Oxygen saturation abnormal [Not Recovered/Not Resolved]
  - Prostate cancer [Not Recovered/Not Resolved]
  - Condition aggravated [Not Recovered/Not Resolved]
  - Blood pressure fluctuation [Not Recovered/Not Resolved]
  - Off label use [Not Recovered/Not Resolved]
  - Product use issue [Not Recovered/Not Resolved]
  - Abdominal pain [Not Recovered/Not Resolved]
  - Fatigue [Not Recovered/Not Resolved]
  - Intentional product use issue [Not Recovered/Not Resolved]
  - Impaired quality of life [Not Recovered/Not Resolved]
  - Prostatic specific antigen increased [Not Recovered/Not Resolved]
